FAERS Safety Report 13995839 (Version 1)
Quarter: 2017Q3

REPORT INFORMATION
  Report Type: Spontaneous
  Country: ES (occurrence: ES)
  Receive Date: 20170921
  Receipt Date: 20170921
  Transmission Date: 20171128
  Serious: Yes (Hospitalization)
  Sender: FDA-Public Use
  Company Number: PHHY2017ES135650

PATIENT
  Age: 65 Year
  Sex: Male

DRUGS (1)
  1. ADOPORT [Suspect]
     Active Substance: TACROLIMUS
     Indication: IMMUNOSUPPRESSION
     Dosage: 8 MG, QD
     Route: 048
     Dates: start: 20170105

REACTIONS (4)
  - Asthenia [Recovered/Resolved]
  - Cytomegalovirus infection [Recovered/Resolved]
  - Fatigue [Recovered/Resolved]
  - Delayed graft function [Recovered/Resolved]

NARRATIVE: CASE EVENT DATE: 20161229
